FAERS Safety Report 15223494 (Version 1)
Quarter: 2018Q3

REPORT INFORMATION
  Report Type: Spontaneous
  Country: US (occurrence: US)
  Receive Date: 20180731
  Receipt Date: 20180731
  Transmission Date: 20181010
  Serious: No
  Sender: FDA-Public Use
  Company Number: US-GE HEALTHCARE LIFE SCIENCES-2018CSU002121

PATIENT
  Age: 59 Year
  Sex: Female

DRUGS (1)
  1. OMNIPAQUE [Suspect]
     Active Substance: IOHEXOL
     Indication: EMBOLISM
     Dosage: UNK UNK, SINGLE
     Route: 061
     Dates: start: 20180525, end: 20180525

REACTIONS (2)
  - Accidental exposure to product [Recovered/Resolved]
  - Hair injury [Recovered/Resolved]

NARRATIVE: CASE EVENT DATE: 20180525
